FAERS Safety Report 12214454 (Version 2)
Quarter: 2016Q2

REPORT INFORMATION
  Report Type: Report from Study
  Country: AR (occurrence: AR)
  Receive Date: 20160328
  Receipt Date: 20160412
  Transmission Date: 20160815
  Serious: Yes (Hospitalization, Other)
  Sender: FDA-Public Use
  Company Number: PHHY2016AR039979

PATIENT
  Age: 54 Year
  Sex: Male

DRUGS (3)
  1. SALBUTAMOL [Concomitant]
     Active Substance: ALBUTEROL
     Indication: PRODUCT USED FOR UNKNOWN INDICATION
     Route: 065
  2. EXFORGE [Suspect]
     Active Substance: AMLODIPINE BESYLATE\VALSARTAN
     Indication: HYPERTENSION
     Dosage: (AMLODIPINE 10 MG/VALSARTAN 160 MG/HYDROCHLOROTHIAZIDE 12.5 MG)
     Route: 065
     Dates: end: 201502
  3. ACETYLSALICYLIC ACID [Concomitant]
     Active Substance: ASPIRIN
     Indication: PRODUCT USED FOR UNKNOWN INDICATION
     Route: 065

REACTIONS (7)
  - Polyuria [Unknown]
  - Arterial occlusive disease [Recovered/Resolved]
  - Blood pressure increased [Unknown]
  - Chronic obstructive pulmonary disease [Recovered/Resolved]
  - Infarction [Recovered/Resolved]
  - Malaise [Recovered/Resolved]
  - Throat irritation [Recovered/Resolved]

NARRATIVE: CASE EVENT DATE: 201502
